FAERS Safety Report 9202721 (Version 4)
Quarter: 2013Q2

REPORT INFORMATION
  Report Type: Report from Study
  Country: US (occurrence: US)
  Receive Date: 20130401
  Receipt Date: 20130517
  Transmission Date: 20140414
  Serious: Yes (Hospitalization)
  Sender: FDA-Public Use
  Company Number: US-PFIZER INC-2013070979

PATIENT
  Age: 48 Year
  Sex: Female
  Weight: 103.5 kg

DRUGS (7)
  1. IBUPROFEN [Suspect]
     Indication: OSTEOARTHRITIS
     Dosage: 600 MG, 3X/DAY
     Route: 048
     Dates: start: 20111219, end: 20130222
  2. NEXIUM [Suspect]
     Indication: PROPHYLAXIS
     Dosage: 20 MG, 1X/DAY
     Route: 048
     Dates: start: 20121219, end: 20130222
  3. MORPHINE SULFATE [Suspect]
     Indication: NECK PAIN
     Dosage: 15 MG, PRN BID
     Route: 048
     Dates: start: 20120928, end: 20130225
  4. MORPHINE SULFATE [Suspect]
     Indication: BACK PAIN
  5. ROXYCODONE [Suspect]
     Indication: NECK PAIN
     Dosage: 15 MG, PRN TID
     Route: 048
     Dates: start: 20120928
  6. ROXYCODONE [Suspect]
     Indication: BACK PAIN
  7. HYDROCHLOROTHIAZIDE/LISINOPRIL [Suspect]
     Indication: HYPERTENSION
     Dosage: 10/125 MG
     Route: 048
     Dates: start: 20121121, end: 20130225

REACTIONS (1)
  - Drug-induced liver injury [Not Recovered/Not Resolved]
